FAERS Safety Report 17678395 (Version 1)
Quarter: 2020Q2

REPORT INFORMATION
  Report Type: Spontaneous
  Country: CN (occurrence: CN)
  Receive Date: 20200417
  Receipt Date: 20200417
  Transmission Date: 20200714
  Serious: Yes (Other)
  Sender: FDA-Public Use
  Company Number: CN-ROCHE-2584313

PATIENT
  Age: 57 Year
  Sex: Female

DRUGS (2)
  1. HERCEPTIN [Suspect]
     Active Substance: TRASTUZUMAB
     Indication: BREAST CANCER
     Dosage: INITIAL 4 MG/KG PER WEEK, FOLLOW BY 2 MG/KG
     Route: 065
     Dates: start: 20191025, end: 20200102
  2. PACLITAXEL. [Concomitant]
     Active Substance: PACLITAXEL
     Indication: BREAST CANCER
     Route: 065
     Dates: start: 20191025, end: 20200102

REACTIONS (4)
  - Bone marrow failure [Recovered/Resolved]
  - Asthenia [Unknown]
  - Neurotoxicity [Unknown]
  - Decreased appetite [Unknown]
